FAERS Safety Report 14019139 (Version 1)
Quarter: 2017Q3

REPORT INFORMATION
  Report Type: Spontaneous
  Country: US (occurrence: US)
  Receive Date: 20170928
  Receipt Date: 20170928
  Transmission Date: 20171128
  Serious: No
  Sender: FDA-Public Use
  Company Number: US-009507513-1709USA012662

PATIENT
  Sex: Female

DRUGS (1)
  1. NEXPLANON [Suspect]
     Active Substance: ETONOGESTREL
     Dosage: 3 YEARS IMPLANT
     Route: 059

REACTIONS (2)
  - Implant site pain [Unknown]
  - Incorrect drug administration duration [Unknown]

NARRATIVE: CASE EVENT DATE: 20170924
